FAERS Safety Report 7023249-0 (Version None)
Quarter: 2010Q3

REPORT INFORMATION
  Report Type: 
  Country: None (occurrence: None)
  Receive Date: 20100916
  Receipt Date: 20100527
  Transmission Date: 20110219
  Serious: No
  Sender: FDA-Public Use
  Company Number: DKLU1062720

PATIENT
  Sex: Male

DRUGS (13)
  1. SABRIL [Suspect]
     Indication: CONVULSION
     Dosage: 1000 MG MILLIGRAM(S), 2 IN 1 D, ORAL
     Route: 048
  2. ACETAMINOPHEN [Concomitant]
  3. ASPIRIN [Concomitant]
  4. CRESTOR [Concomitant]
  5. DEPAKOTE (VALPROATE SEMISODIUM) (TABLET) [Concomitant]
  6. GLIMEPIRIDE [Concomitant]
  7. JANUVA [Concomitant]
  8. KEPPRA XR(TABLET) [Concomitant]
  9. LAMICTAL [Concomitant]
  10. LANTIS UNSULIN [Concomitant]
  11. ZOLOFT [Concomitant]
  12. LEVOTHYROXINE SODIUM [Concomitant]
  13. NIASPAN [Concomitant]

REACTIONS (1)
  - ANGER [None]
